FAERS Safety Report 5867630-1 (Version None)
Quarter: 2008Q3

REPORT INFORMATION
  Report Type: 
  Country: None (occurrence: None)
  Receive Date: 20080902
  Receipt Date: 20080819
  Transmission Date: 20090109
  Serious: Yes (Other)
  Sender: FDA-Public Use
  Company Number: FR-ROCHE-570686

PATIENT
  Sex: Female
  Weight: 70 kg

DRUGS (5)
  1. XELODA [Suspect]
     Indication: BREAST CANCER
     Route: 048
     Dates: start: 20080320
  2. ALPRAZOLAM [Concomitant]
     Dosage: DOSAGE: 1 DOSE
     Route: 048
     Dates: start: 20070101
  3. NEO-MERCAZOLE TAB [Concomitant]
     Indication: HYPERTHYROIDISM
     Dosage: DOSAGE: 1 DOSE
     Route: 048
     Dates: start: 19980101
  4. ATENOLOL [Concomitant]
     Indication: ARRHYTHMIA
     Dosage: DOSAGE; 1 DOSE
     Route: 048
     Dates: start: 20030101
  5. PREVISCAN [Concomitant]
     Route: 048
     Dates: start: 20050101

REACTIONS (1)
  - MACROCYTOSIS [None]
